FAERS Safety Report 19005481 (Version 1)
Quarter: 2021Q1

REPORT INFORMATION
  Report Type: Report from Study
  Country: US (occurrence: US)
  Receive Date: 20210313
  Receipt Date: 20210313
  Transmission Date: 20210420
  Serious: Yes (Death, Other)
  Sender: FDA-Public Use
  Company Number: NVSC2021US017447

PATIENT
  Age: 64 Year
  Sex: Female

DRUGS (2)
  1. KYMRIAH [Suspect]
     Active Substance: TISAGENLECLEUCEL
     Indication: DIFFUSE LARGE B-CELL LYMPHOMA
     Dosage: 2.6E8 CAR?POSITIVE VIABLE T CELLS
     Route: 065
     Dates: start: 20200924
  2. BENDAMUSTINE [Concomitant]
     Active Substance: BENDAMUSTINE
     Indication: CHEMOTHERAPY
     Dosage: UNK
     Route: 065

REACTIONS (15)
  - Encephalopathy [Unknown]
  - Neurotoxicity [Unknown]
  - Depressed level of consciousness [Unknown]
  - Disturbance in social behaviour [Unknown]
  - Tremor [Unknown]
  - White blood cell count decreased [Unknown]
  - Neoplasm malignant [Fatal]
  - Speech disorder [Unknown]
  - Pyrexia [Unknown]
  - Platelet count decreased [Unknown]
  - Haematocrit decreased [Unknown]
  - Cytokine release syndrome [Recovered/Resolved]
  - Confusional state [Unknown]
  - Haemoglobin decreased [Unknown]
  - Staphylococcal infection [Unknown]
